FAERS Safety Report 5118080-7 (Version None)
Quarter: 2006Q4

REPORT INFORMATION
  Report Type: 
  Country: None (occurrence: None)
  Receive Date: 20061002
  Receipt Date: 20060927
  Transmission Date: 20070319
  Serious: Yes (Disabling)
  Sender: FDA-Public Use
  Company Number: GR-SP-2006-02530

PATIENT
  Age: 33 Year
  Sex: Male

DRUGS (1)
  1. BCG  THERAPEUTICS [Suspect]
     Indication: BLADDER CANCER
     Route: 043

REACTIONS (4)
  - BEDRIDDEN [None]
  - MALAISE [None]
  - POLYARTHRITIS [None]
  - PYREXIA [None]
